FAERS Safety Report 5964003-8 (Version None)
Quarter: 2008Q4

REPORT INFORMATION
  Report Type: 
  Country: None (occurrence: None)
  Receive Date: 20081119
  Receipt Date: 20080921
  Transmission Date: 20090506
  Serious: No
  Sender: FDA-Public Use
  Company Number: WAES 0809USA03901

PATIENT
  Age: 67 Year
  Sex: Female

DRUGS (2)
  1. JANUVIA [Suspect]
     Indication: DIABETES MELLITUS
     Dosage: 200 MG/1X/PO : 100 MG/DAILY/PO
     Route: 048
     Dates: start: 20080921, end: 20080921
  2. SINGULAIR [Suspect]

REACTIONS (2)
  - ACCIDENTAL OVERDOSE [None]
  - WRONG DRUG ADMINISTERED [None]
